FAERS Safety Report 17722747 (Version 1)
Quarter: 2020Q2

REPORT INFORMATION
  Report Type: Spontaneous
  Country: CA (occurrence: CA)
  Receive Date: 20200429
  Receipt Date: 20200429
  Transmission Date: 20200714
  Serious: Yes (Death)
  Sender: FDA-Public Use
  Company Number: CA-PFIZER INC-2017438543

PATIENT
  Age: 53 Year
  Sex: Female

DRUGS (5)
  1. TYLENOL [Concomitant]
     Active Substance: ACETAMINOPHEN
     Dosage: UNK UNK, AS NEEDED
  2. TRAZODONE [Concomitant]
     Active Substance: TRAZODONE HYDROCHLORIDE
     Dosage: 50 UNK, UNK
  3. IBRANCE [Suspect]
     Active Substance: PALBOCICLIB
     Dosage: 125 MG, CYCLIC,21 DAYS ON, 7 DAYS OFF
     Dates: start: 20170410
  4. CALCIUM + VITAMIN D /01817601/ [Concomitant]
     Active Substance: CALCIUM LACTATE\CALCIUM PHOSPHATE\CHOLECALCIFEROL
  5. LETROZOLE. [Concomitant]
     Active Substance: LETROZOLE

REACTIONS (1)
  - Death [Fatal]
